FAERS Safety Report 5801911-2 (Version None)
Quarter: 2008Q3

REPORT INFORMATION
  Report Type: 
  Country: None (occurrence: None)
  Receive Date: 20080707
  Receipt Date: 20080623
  Transmission Date: 20090109
  Serious: Yes (Other)
  Sender: FDA-Public Use
  Company Number: US-ELI_LILLY_AND_COMPANY-US200806005049

PATIENT
  Age: 62 Year
  Sex: Female

DRUGS (6)
  1. CYMBALTA [Suspect]
     Indication: DEPRESSION
     Dosage: 60 MG, UNK
     Dates: start: 20070101, end: 20080529
  2. CYMBALTA [Suspect]
     Dosage: 60 MG, 2/D
     Dates: start: 20080530, end: 20080619
  3. CYMBALTA [Suspect]
     Dosage: 60 MG, UNK
     Dates: start: 20080620
  4. TRAZODONE HCL [Concomitant]
     Dosage: 100 MG, EACH EVENING
  5. INDERAL [Concomitant]
     Indication: BLOOD PRESSURE
  6. HYDROCHLOROTHIAZIDE [Concomitant]
     Indication: BLOOD PRESSURE

REACTIONS (6)
  - BLOOD PRESSURE DECREASED [None]
  - DIZZINESS [None]
  - DRUG INEFFECTIVE [None]
  - ORTHOSTATIC HYPOTENSION [None]
  - SKIN CANCER [None]
  - VERTIGO [None]
